FAERS Safety Report 7347622-6 (Version None)
Quarter: 2011Q1

REPORT INFORMATION
  Report Type: 
  Country: None (occurrence: None)
  Receive Date: 20110303
  Receipt Date: 20110222
  Transmission Date: 20110831
  Serious: Yes (Disabling)
  Sender: FDA-Public Use
  Company Number: AVE_02046_2010

PATIENT
  Age: 71 Year
  Sex: Female

DRUGS (1)
  1. CLONIDINE [Suspect]
     Indication: HYPERTENSION
     Dosage: (0.1 MG QD, VIA 1/WEELY PATCH TRANSDERMAL)
     Route: 062
     Dates: start: 20101206

REACTIONS (6)
  - DRUG INEFFECTIVE [None]
  - FATIGUE [None]
  - BLOOD PRESSURE INCREASED [None]
  - PRODUCT ADHESION ISSUE [None]
  - SOMNOLENCE [None]
  - DRY MOUTH [None]
